FAERS Safety Report 7151845-9 (Version None)
Quarter: 2010Q4

REPORT INFORMATION
  Report Type: 
  Country: None (occurrence: None)
  Receive Date: 20101210
  Receipt Date: 20101129
  Transmission Date: 20110411
  Serious: Yes (Death)
  Sender: FDA-Public Use
  Company Number: JP-ABBOTT-10P-087-0690676-00

PATIENT
  Age: 81 Year
  Sex: Male

DRUGS (4)
  1. LEUPLIN SR FOR INJECTION 11.25 MG [Suspect]
     Indication: PROSTATE CANCER STAGE III
     Route: 048
     Dates: start: 20070912, end: 20090421
  2. BICALUTAMIDE [Concomitant]
     Indication: PROSTATE CANCER STAGE III
     Route: 048
     Dates: start: 20070822, end: 20081105
  3. TAMSULOSIN HCL [Concomitant]
     Indication: BENIGN PROSTATIC HYPERPLASIA
  4. EVIPROSTAT [Concomitant]
     Indication: BENIGN PROSTATIC HYPERPLASIA
     Route: 048

REACTIONS (1)
  - LARGE INTESTINE CARCINOMA [None]
